FAERS Safety Report 18997840 (Version 1)
Quarter: 2021Q1

REPORT INFORMATION
  Report Type: Spontaneous
  Country: DE (occurrence: DE)
  Receive Date: 20210311
  Receipt Date: 20210311
  Transmission Date: 20210420
  Serious: Yes (Hospitalization)
  Sender: FDA-Public Use
  Company Number: DE-TEVA-2021-DE-1888057

PATIENT
  Age: 72 Year
  Sex: Male
  Weight: 108 kg

DRUGS (6)
  1. TORASEMID [Suspect]
     Active Substance: TORSEMIDE
     Dosage: 2.5 MILLIGRAM DAILY; 1?0?0?0
     Route: 048
  2. SIMVASTATIN. [Concomitant]
     Active Substance: SIMVASTATIN
     Dosage: 20 MILLIGRAM DAILY; 0?0?0?1
     Route: 048
  3. PANTOPRAZOL [Concomitant]
     Active Substance: PANTOPRAZOLE SODIUM
     Dosage: 40 MILLIGRAM DAILY; 1?0?0?0
     Route: 048
  4. ENTRESTO [Suspect]
     Active Substance: SACUBITRIL\VALSARTAN
     Dosage: 2 DOSAGE FORMS DAILY; 1?0?1?0
     Route: 048
  5. PHENPROCOUMON [Concomitant]
     Active Substance: PHENPROCOUMON
     Dosage: 3 MG, ACCORDING TO THE SCHEME
     Route: 048
  6. CARVEDILOL. [Suspect]
     Active Substance: CARVEDILOL
     Dosage: 12.5 MILLIGRAM DAILY; 1?0?0?0
     Route: 048

REACTIONS (3)
  - Syncope [Unknown]
  - Orthostatic intolerance [Unknown]
  - Product monitoring error [Unknown]

NARRATIVE: CASE EVENT DATE: 20190531
